FAERS Safety Report 5763077-7 (Version None)
Quarter: 2008Q2

REPORT INFORMATION
  Report Type: 
  Country: None (occurrence: None)
  Receive Date: 20080609
  Receipt Date: 20080528
  Transmission Date: 20081010
  Serious: Yes (Hospitalization)
  Sender: FDA-Public Use
  Company Number: US-ELI_LILLY_AND_COMPANY-US200805005651

PATIENT
  Sex: Female

DRUGS (2)
  1. FORTEO [Suspect]
     Indication: OSTEOPOROSIS
     Dates: start: 20071001
  2. PLAVIX [Concomitant]

REACTIONS (5)
  - CONTUSION [None]
  - CONVULSION [None]
  - HAEMATOMA [None]
  - PAIN IN EXTREMITY [None]
  - TRANSIENT ISCHAEMIC ATTACK [None]
